FAERS Safety Report 6842536-X (Version None)
Quarter: 2010Q3

REPORT INFORMATION
  Report Type: 
  Country: None (occurrence: None)
  Receive Date: 20100714
  Receipt Date: 20070730
  Transmission Date: 20110219
  Serious: No
  Sender: FDA-Public Use
  Company Number: US-PFIZER INC-2007065333

PATIENT
  Sex: Female
  Weight: 57 kg

DRUGS (7)
  1. CHANTIX [Suspect]
     Indication: EX-TOBACCO USER
     Dates: start: 20070101
  2. LAMICTAL [Interacting]
     Indication: MOOD ALTERED
     Dates: start: 20070101
  3. PROZAC [Concomitant]
  4. NEURONTIN [Concomitant]
  5. ALPRAZOLAM [Concomitant]
  6. RITALIN [Concomitant]
  7. LORTAB [Concomitant]
     Indication: PAIN

REACTIONS (5)
  - DRUG INTERACTION [None]
  - DYSKINESIA [None]
  - EXTRAPYRAMIDAL DISORDER [None]
  - MUSCLE SPASMS [None]
  - MUSCLE TIGHTNESS [None]
